FAERS Safety Report 4715738-6 (Version None)
Quarter: 2005Q2

REPORT INFORMATION
  Report Type: 
  Country: None (occurrence: None)
  Receive Date: 20050629
  Receipt Date: 20050330
  Transmission Date: 20051028
  Serious: No
  Sender: FDA-Public Use
  Company Number: SP00421

PATIENT
  Age: 72 Year
  Sex: Female
  Weight: 74.8435 kg

DRUGS (1)
  1. XIFAXAN [Suspect]
     Indication: GASTROINTESTINAL DISORDER
     Dosage: 200MG/TID, ORAL
     Route: 048
     Dates: start: 20050316, end: 20050316

REACTIONS (3)
  - ARTHRALGIA [None]
  - CHEST PAIN [None]
  - GASTROINTESTINAL MOTILITY DISORDER [None]
